FAERS Safety Report 4278102-2 (Version None)
Quarter: 2004Q1

REPORT INFORMATION
  Report Type: 
  Country: None (occurrence: None)
  Receive Date: 20040122
  Receipt Date: 20040122
  Transmission Date: 20041129
  Serious: Yes (Hospitalization)
  Sender: FDA-Public Use
  Company Number: None

PATIENT
  Age: 58 Year
  Sex: Female
  Weight: 54.4316 kg

DRUGS (8)
  1. LEXAPRO [Suspect]
     Indication: FIBROMYALGIA
     Dates: start: 20030601
  2. EFFEXOR [Suspect]
     Dates: start: 20030601
  3. SKELAXIN [Concomitant]
  4. PREVACID [Concomitant]
  5. PEPCID [Concomitant]
  6. PREMARIN [Concomitant]
  7. CELEBREX [Concomitant]
  8. AMBIEN [Concomitant]

REACTIONS (5)
  - HYPERHIDROSIS [None]
  - NAUSEA [None]
  - PALPITATIONS [None]
  - SYNCOPE [None]
  - VOMITING [None]
